FAERS Safety Report 9443697 (Version 1)
Quarter: 2013Q3

REPORT INFORMATION
  Report Type: Report from Study
  Country: RU (occurrence: RU)
  Receive Date: 20130806
  Receipt Date: 20130806
  Transmission Date: 20140515
  Serious: Yes (Other)
  Sender: FDA-Public Use
  Company Number: RU-ROCHE-GNE317500

PATIENT
  Age: 70 Year
  Sex: Male

DRUGS (2)
  1. RANIBIZUMAB [Suspect]
     Indication: AGE-RELATED MACULAR DEGENERATION
     Route: 050
     Dates: start: 20101222
  2. RANIBIZUMAB [Suspect]
     Route: 050
     Dates: start: 20110228

REACTIONS (1)
  - Retinal haemorrhage [Recovering/Resolving]
